FAERS Safety Report 23014619 (Version 2)
Quarter: 2023Q4

REPORT INFORMATION
  Report Type: Report from Study
  Country: TW (occurrence: None)
  Receive Date: 20231002
  Receipt Date: 20231024
  Transmission Date: 20240109
  Serious: Yes (Other)
  Sender: FDA-Public Use
  Company Number: 2023A220358

PATIENT
  Age: 19094 Day
  Sex: Female

DRUGS (1)
  1. IMFINZI [Suspect]
     Active Substance: DURVALUMAB
     Indication: Metastases to lung
     Dosage: 480.0MG UNKNOWN
     Route: 041
     Dates: start: 20230427

REACTIONS (5)
  - Deafness [Unknown]
  - Chest discomfort [Unknown]
  - Arrhythmia [Unknown]
  - Tinnitus [Unknown]
  - Cough [Not Recovered/Not Resolved]

NARRATIVE: CASE EVENT DATE: 20230427
